FAERS Safety Report 10078526 (Version 2)
Quarter: 2014Q2

REPORT INFORMATION
  Report Type: Report from Study
  Country: US (occurrence: US)
  Receive Date: 20140415
  Receipt Date: 20140505
  Transmission Date: 20141212
  Serious: Yes (Life-Threatening, Hospitalization)
  Sender: FDA-Public Use
  Company Number: US-ROCHE-1382894

PATIENT
  Age: 72 Year
  Sex: Female
  Weight: 65.5 kg

DRUGS (17)
  1. CELLCEPT [Suspect]
     Indication: RENAL TRANSPLANT
     Route: 048
  2. CARVEDILOL [Concomitant]
     Indication: HYPERTENSION
     Route: 065
  3. LEVEMIR FLEXPEN [Concomitant]
     Route: 058
  4. NEORAL OR PLACEBO [Concomitant]
     Indication: TRANSPLANT
     Route: 048
  5. ASA [Concomitant]
     Indication: ANGIOPATHY
     Route: 048
  6. DILTIAZEM [Concomitant]
     Indication: HYPERTENSION
     Route: 048
  7. SENSIPAR [Concomitant]
     Indication: HYPERPARATHYROIDISM SECONDARY
     Route: 048
  8. HYDRALAZINE [Concomitant]
     Indication: HYPERTENSION
     Route: 065
  9. GABAPENTIN [Concomitant]
     Indication: NEUROPATHY PERIPHERAL
     Route: 065
  10. VITAMIN D3 [Concomitant]
     Indication: VITAMIN D DEFICIENCY
     Route: 065
  11. PANTOPRAZOLE MAGNESIUM [Concomitant]
     Indication: GASTROOESOPHAGEAL REFLUX DISEASE
     Route: 065
  12. ADVAIR DISKUS [Concomitant]
     Indication: BRONCHIAL HYPERREACTIVITY
     Dosage: 250/50 UNIT NOT REPORTED  PRN AS REQUIRED
     Route: 065
  13. TORSEMIDE [Concomitant]
     Indication: PRODUCT USED FOR UNKNOWN INDICATION
     Route: 065
  14. PREDNISONE [Concomitant]
     Indication: TRANSPLANT
     Route: 065
  15. PENTOXIFYLLINE ERT [Concomitant]
     Indication: ANGIOPATHY
     Route: 065
  16. PREDNISONE ACETATE [Concomitant]
     Indication: PRODUCT USED FOR UNKNOWN INDICATION
     Route: 065
  17. TIMOLOL [Concomitant]
     Indication: PRODUCT USED FOR UNKNOWN INDICATION
     Route: 065

REACTIONS (1)
  - Haemorrhagic stroke [Recovered/Resolved with Sequelae]
